FAERS Safety Report 16969456 (Version 1)
Quarter: 2019Q4

REPORT INFORMATION
  Report Type: Spontaneous
  Country: CA (occurrence: CA)
  Receive Date: 20191029
  Receipt Date: 20191029
  Transmission Date: 20200122
  Serious: Yes (Other)
  Sender: FDA-Public Use
  Company Number: CA-PFIZER INC-2019198532

PATIENT
  Age: 64 Year
  Sex: Female

DRUGS (6)
  1. NAPROXEN. [Concomitant]
     Active Substance: NAPROXEN
     Dosage: 500 MG, 2X/DAY AS NEEDED
  2. XELJANZ [Suspect]
     Active Substance: TOFACITINIB CITRATE
     Indication: PSORIATIC ARTHROPATHY
     Dosage: 0.25 DF, UNK
  3. TAMOXIFEN [Concomitant]
     Active Substance: TAMOXIFEN
     Dosage: UNK
     Dates: end: 20191017
  4. XELJANZ [Suspect]
     Active Substance: TOFACITINIB CITRATE
     Indication: RHEUMATOID ARTHRITIS
     Dosage: 0.5 DF, 2X/DAY
     Route: 048
     Dates: start: 20190507, end: 20190513
  5. XELJANZ [Suspect]
     Active Substance: TOFACITINIB CITRATE
     Dosage: 5 MG, 2X/DAY
     Route: 048
     Dates: start: 20190514
  6. CANNABIDIOL [Concomitant]
     Active Substance: CANNABIDIOL
     Dosage: UNK (FOR ALMOST 1 YEAR AT 3-4 TIMES A DAY)

REACTIONS (6)
  - Neoplasm malignant [Unknown]
  - Off label use [Unknown]
  - Thirst [Unknown]
  - Fatigue [Unknown]
  - Condition aggravated [Unknown]
  - Product use issue [Unknown]
